FAERS Safety Report 10374811 (Version 1)
Quarter: 2014Q1

REPORT INFORMATION
  Report Type: Report from Study
  Country: US (occurrence: None)
  Receive Date: 20140306
  Receipt Date: 20140306
  Transmission Date: 20141002
  Serious: Yes (Hospitalization)
  Sender: FDA-Public Use
  Company Number: 163-21880-13122073

PATIENT
  Sex: Female

DRUGS (5)
  1. REVLIMID (LENALIDOMIDE) (CAPSULES) [Suspect]
     Indication: PLASMA CELL MYELOMA
     Dosage: 1 IN 2 WK, PO
     Route: 048
     Dates: start: 20131108, end: 20131108
  2. SAR650984 [Suspect]
     Indication: PLASMA CELL MYELOMA
     Dosage: DAYS 1 AND 15, INTRAVENOUS (NOT OTHERWISE SPECIFIED)
     Route: 042
     Dates: start: 20131108, end: 20131108
  3. DEXAMETHASONE [Suspect]
     Indication: PLASMA CELL MYELOMA
     Dosage: DAYS 1, 8, 15, 22, PO
     Route: 048
     Dates: start: 20131108
  4. RED BLOOD CELLS (RED BLOOD CELLS) (INJECTION) [Concomitant]
  5. PLATELETS (PLATELETS) (INJECTION) [Concomitant]

REACTIONS (1)
  - Febrile neutropenia [None]
